FAERS Safety Report 14999523 (Version 1)
Quarter: 2018Q2

REPORT INFORMATION
  Report Type: Spontaneous
  Country: GB (occurrence: GB)
  Receive Date: 20180612
  Receipt Date: 20180612
  Transmission Date: 20180711
  Serious: Yes (Hospitalization)
  Sender: FDA-Public Use
  Company Number: GB-ACCORD-068171

PATIENT
  Age: 84 Year
  Sex: Female

DRUGS (8)
  1. PERINDOPRIL/PERINDOPRIL ERBUMINE [Concomitant]
  2. CASSIA [Concomitant]
  3. LANSOPRAZOLE. [Concomitant]
     Active Substance: LANSOPRAZOLE
  4. NEFOPAM [Concomitant]
     Active Substance: NEFOPAM
  5. PARACETAMOL [Concomitant]
     Active Substance: ACETAMINOPHEN
  6. AMLODIPINE [Suspect]
     Active Substance: AMLODIPINE BESYLATE
     Indication: PRODUCT USED FOR UNKNOWN INDICATION
     Route: 048
  7. FLUCLOXACILLIN [Concomitant]
     Active Substance: FLUCLOXACILLIN
     Route: 048
  8. MACROGOL 3350 [Concomitant]
     Active Substance: POLYETHYLENE GLYCOL 3350

REACTIONS (2)
  - Cellulitis [Unknown]
  - Dysuria [Unknown]
